FAERS Safety Report 5714816-2 (Version None)
Quarter: 2008Q2

REPORT INFORMATION
  Report Type: 
  Country: None (occurrence: None)
  Receive Date: 20080421
  Receipt Date: 20080403
  Transmission Date: 20081010
  Serious: Yes (Hospitalization)
  Sender: FDA-Public Use
  Company Number: 2008BI009154

PATIENT
  Age: 60 Year
  Sex: Female

DRUGS (7)
  1. ZEVALIN [Suspect]
     Indication: DRUG USE FOR UNKNOWN INDICATION
     Dosage: 847 MBQ; 1X; IV
     Route: 042
     Dates: start: 20080125, end: 20080125
  2. RITUXIMAB [Concomitant]
  3. RITUXIMAB [Concomitant]
  4. CARMUSTINE [Concomitant]
  5. ETOPOSIDE [Concomitant]
  6. ARACYTINE [Concomitant]
  7. MELPHALAN [Concomitant]

REACTIONS (2)
  - HERPES OESOPHAGITIS [None]
  - PAIN [None]
